FAERS Safety Report 6085250-3 (Version None)
Quarter: 2009Q1

REPORT INFORMATION
  Report Type: 
  Country: None (occurrence: None)
  Receive Date: 20090220
  Receipt Date: 20090216
  Transmission Date: 20090719
  Serious: Yes (Death, Other)
  Sender: FDA-Public Use
  Company Number: NZ-AVENTIS-200911513GDDC

PATIENT
  Age: 72 Year
  Sex: Female

DRUGS (3)
  1. ARAVA [Suspect]
     Indication: RHEUMATOID ARTHRITIS
     Dates: start: 20070702
  2. METHOTREXATE [Concomitant]
     Dosage: DOSE: UNK
  3. ACETAMINOPHEN [Concomitant]
     Dosage: DOSE: UNK

REACTIONS (3)
  - DEATH [None]
  - LIVER FUNCTION TEST ABNORMAL [None]
  - PNEUMONIA [None]
